FAERS Safety Report 4689279-9 (Version None)
Quarter: 2005Q2

REPORT INFORMATION
  Report Type: 
  Country: None (occurrence: None)
  Receive Date: 20050608
  Receipt Date: 20050322
  Transmission Date: 20051028
  Serious: No
  Sender: FDA-Public Use
  Company Number: 2005-BP-04916BP

PATIENT
  Age: 80 Year
  Sex: Male
  Weight: 82.73 kg

DRUGS (17)
  1. SPIRIVA [Suspect]
     Indication: CHRONIC OBSTRUCTIVE PULMONARY DISEASE
     Dosage: 18 MCG (18 MCG, QD), IH
     Route: 055
     Dates: start: 20040901, end: 20050321
  2. SPIRIVA [Suspect]
     Indication: CHRONIC OBSTRUCTIVE PULMONARY DISEASE
     Dosage: 18 MCG (18 MCG, QD), IH
     Route: 055
     Dates: start: 20040901, end: 20050321
  3. BIAXIN [Concomitant]
  4. MUCINEX (GUAIFENESIN) [Concomitant]
  5. COUGH SYRUP [Concomitant]
  6. ADVAIR DISKUS 100/50 [Concomitant]
  7. XOPENEX + IPRATROPIUM [Concomitant]
  8. DIGOXIN [Concomitant]
  9. ALBUTEROL [Concomitant]
  10. ENALAPRIL MALEATE [Concomitant]
  11. FUROSEMIDE [Concomitant]
  12. K (POTASSIUM) [Concomitant]
  13. MULTIVITAMIN [Concomitant]
  14. CALCIUM (CALCIUM) [Concomitant]
  15. FLAX SEED (LINUM USITATISSIMUM SEED OIL) [Concomitant]
  16. IBUPROFEN [Concomitant]
  17. OXYGEN (OXYGEN) [Concomitant]

REACTIONS (4)
  - COUGH [None]
  - DYSPNOEA EXACERBATED [None]
  - INCREASED UPPER AIRWAY SECRETION [None]
  - PULMONARY CONGESTION [None]
